FAERS Safety Report 5800824-X (Version None)
Quarter: 2008Q3

REPORT INFORMATION
  Report Type: 
  Country: None (occurrence: None)
  Receive Date: 20080703
  Receipt Date: 20080626
  Transmission Date: 20090109
  Serious: Yes (Hospitalization, Other)
  Sender: FDA-Public Use
  Company Number: US-AMGEN-QUU290588

PATIENT
  Sex: Female

DRUGS (2)
  1. ENBREL [Suspect]
     Indication: PSORIASIS
     Route: 058
     Dates: start: 20031001
  2. ENBREL [Suspect]
     Indication: PSORIATIC ARTHROPATHY

REACTIONS (7)
  - CERVICAL VERTEBRAL FRACTURE [None]
  - COUGH [None]
  - FALL [None]
  - HYPOAESTHESIA [None]
  - MOUTH HAEMORRHAGE [None]
  - OROPHARYNGEAL PAIN [None]
  - SENSATION OF HEAVINESS [None]
